FAERS Safety Report 24427981 (Version 1)
Quarter: 2024Q4

REPORT INFORMATION
  Report Type: Report from Study
  Country: CN (occurrence: CN)
  Receive Date: 20241011
  Receipt Date: 20241011
  Transmission Date: 20250114
  Serious: Yes (Death, Hospitalization, Other)
  Sender: BAXTER
  Company Number: CN-BAXTER-2024BAX024537

PATIENT
  Age: 62 Year
  Sex: Female

DRUGS (14)
  1. CYCLOPHOSPHAMIDE [Suspect]
     Active Substance: CYCLOPHOSPHAMIDE
     Indication: Diffuse large B-cell lymphoma stage IV
     Dosage: 866 MG, EVERY 3 WEEKS
     Route: 042
     Dates: start: 20240519, end: 20240823
  2. EPCORITAMAB [Suspect]
     Active Substance: EPCORITAMAB
     Indication: Diffuse large B-cell lymphoma stage IV
     Dosage: 48 MG C1 (STEP-UP), CYCLES 2 - 4 (21-DAY CYCLE, WEEKLY DOSE), C5 - 8 (21-DAY CYCLE, EVERY 3 WEEKS) P
     Route: 058
     Dates: start: 20240519, end: 20240823
  3. RITUXIMAB [Suspect]
     Active Substance: RITUXIMAB
     Indication: Diffuse large B-cell lymphoma stage IV
     Dosage: 577.5 MG, EVERY 3 WEEKS
     Route: 042
     Dates: start: 20240518, end: 20240823
  4. VINCRISTINE [Suspect]
     Active Substance: VINCRISTINE
     Indication: Diffuse large B-cell lymphoma stage IV
     Dosage: 2 MG, EVERY 3 WEEKS
     Route: 042
     Dates: start: 20240519, end: 20240823
  5. DOXORUBICIN [Suspect]
     Active Substance: DOXORUBICIN
     Indication: Diffuse large B-cell lymphoma stage IV
     Dosage: 58 MG, EVERY 3 WEEKS
     Route: 042
     Dates: start: 20240519, end: 20240823
  6. PREDNISONE [Suspect]
     Active Substance: PREDNISONE
     Indication: Diffuse large B-cell lymphoma stage IV
     Dosage: 100 MG DAILY C1-6, DAY 1-5, EVERY 1 DAYS
     Route: 048
     Dates: start: 20240518, end: 20240730
  7. VALSARTAN [Concomitant]
     Active Substance: VALSARTAN
     Indication: Hypertension
     Dosage: 80 MG, EVERY 1 DAYS,START DATE:2014
     Route: 065
  8. GRANULOCYTE COLONY-STIMULATING FACTOR NOS [Concomitant]
     Active Substance: GRANULOCYTE COLONY-STIMULATING FACTOR NOS
     Indication: Neutropenia
     Dosage: 300 UG, EVERY 1 DAYS
     Route: 065
     Dates: start: 20240524
  9. RECOMBINANT HUMAN THROMBOPOIETIN [Concomitant]
     Active Substance: RECOMBINANT HUMAN THROMBOPOIETIN
     Indication: Platelet count increased
     Dosage: 15000 IU, EVERY 1 DAYS
     Route: 065
     Dates: start: 20240524
  10. GLYCERIN [Concomitant]
     Active Substance: GLYCERIN
     Indication: Abdominal distension
     Dosage: 1 DOSAGE FORM BOTTLE, EVERY 1 DAYS
     Route: 065
     Dates: start: 20240517
  11. GLYCERIN [Concomitant]
     Active Substance: GLYCERIN
     Indication: Defaecation disorder
  12. MONOETHANOLAMINE [Suspect]
     Active Substance: MONOETHANOLAMINE
     Indication: Thrombocytopenia
     Dosage: 2 DOSAGE FORM, EVERY 1 DAYS
     Route: 065
     Dates: start: 20240524
  13. Compound gargle solution chlorhexidine gluconate [Concomitant]
     Indication: Dental disorder prophylaxis
     Dosage: 20 ML, 2/DAYS
     Route: 065
     Dates: start: 20240523
  14. OMEPRAZOLE [Concomitant]
     Active Substance: OMEPRAZOLE
     Indication: Gastrointestinal disorder prophylaxis
     Dosage: 20 MG ENTERIC-COATED CAPSULES, EVERY 1 DAYS
     Route: 065
     Dates: start: 20240626

REACTIONS (4)
  - Cardiac arrest [Fatal]
  - Febrile neutropenia [Recovered/Resolved]
  - Thrombocytopenia [Recovered/Resolved]
  - Ascites [Not Recovered/Not Resolved]

NARRATIVE: CASE EVENT DATE: 20240830
